FAERS Safety Report 21734816 (Version 1)
Quarter: 2022Q4

REPORT INFORMATION
  Report Type: Spontaneous
  Country: ZA (occurrence: ZA)
  Receive Date: 20221215
  Receipt Date: 20221215
  Transmission Date: 20230113
  Serious: Yes (Hospitalization, Other)
  Sender: FDA-Public Use
  Company Number: ZA-PFIZER INC-PV202200121358

PATIENT
  Age: 72 Year
  Sex: Male

DRUGS (1)
  1. LINEZOLID [Suspect]
     Active Substance: LINEZOLID
     Dosage: UNK
     Route: 042
     Dates: start: 20220611

REACTIONS (5)
  - Endocarditis bacterial [Unknown]
  - Angina unstable [Unknown]
  - Mitral valve incompetence [Unknown]
  - Endocarditis enterococcal [Unknown]
  - Culture positive [Unknown]

NARRATIVE: CASE EVENT DATE: 20220701
